FAERS Safety Report 15285695 (Version 1)
Quarter: 2018Q3

REPORT INFORMATION
  Report Type: Spontaneous
  Country: JP (occurrence: JP)
  Receive Date: 20180816
  Receipt Date: 20180816
  Transmission Date: 20181010
  Serious: Yes (Other)
  Sender: FDA-Public Use
  Company Number: JP-TEVA-2018-JP-942286

PATIENT
  Age: 8 Decade
  Sex: Female

DRUGS (5)
  1. PACLITAXEL. [Suspect]
     Active Substance: PACLITAXEL
     Indication: OVARIAN CANCER STAGE III
     Dosage: THREE WEEK CYCLE
     Route: 065
     Dates: start: 2012
  2. GEMCITABINE [Suspect]
     Active Substance: GEMCITABINE\GEMCITABINE HYDROCHLORIDE
     Indication: OVARIAN CANCER STAGE III
     Dosage: 800?1000 MG/ M2 ON DAYS 1 AND 8
     Route: 065
  3. CARBOPLATIN. [Suspect]
     Active Substance: CARBOPLATIN
     Indication: OVARIAN CANCER STAGE III
     Dosage: AUC OF 6 MG/ML/MIN? THREE WEEK CYCLE; GIVEN ALONG WITH PACLITAXEL
     Route: 065
     Dates: start: 2012
  4. CARBOPLATIN. [Suspect]
     Active Substance: CARBOPLATIN
     Dosage: AUC 4 MG/ ML/MIN ON DAY 1 GIVEN AT 3?WEEK INTERVALS; GIVEN ALONG WITH GEMCITABINE
     Route: 065
  5. BEVACIZUMAB. [Suspect]
     Active Substance: BEVACIZUMAB
     Indication: OVARIAN CANCER STAGE III
     Route: 065

REACTIONS (7)
  - Epistaxis [Recovering/Resolving]
  - Proteinuria [Recovered/Resolved]
  - Neuropathy peripheral [Unknown]
  - Cellulitis [Recovering/Resolving]
  - Leukopenia [Recovering/Resolving]
  - Neutropenia [Recovering/Resolving]
  - Thrombocytopenia [Recovering/Resolving]
